FAERS Safety Report 24327435 (Version 1)
Quarter: 2024Q3

REPORT INFORMATION
  Report Type: Spontaneous
  Country: US (occurrence: US)
  Receive Date: 20240917
  Receipt Date: 20240917
  Transmission Date: 20241017
  Serious: Yes (Other)
  Sender: BAYER
  Company Number: US-BAYER-2024A131021

PATIENT
  Age: 28 Year
  Sex: Male
  Weight: 65.76 kg

DRUGS (3)
  1. KOVALTRY [Suspect]
     Active Substance: ANTIHEMOPHILIC FACTOR, HUMAN RECOMBINANT
     Indication: Prophylaxis
     Dosage: 6200 U, (5580-6820) PRN
     Route: 042
     Dates: start: 202407
  2. KOVALTRY [Suspect]
     Active Substance: ANTIHEMOPHILIC FACTOR, HUMAN RECOMBINANT
     Indication: Factor VIII deficiency
     Dosage: 3000 U, (2790-3410) PRN EVERY 12-24 HOURS
     Route: 042
     Dates: start: 202407
  3. HEMLIBRA [Concomitant]
     Active Substance: EMICIZUMAB-KXWH

REACTIONS (3)
  - Haemarthrosis [None]
  - Arthralgia [None]
  - Weight decreased [None]

NARRATIVE: CASE EVENT DATE: 20240101
